FAERS Safety Report 12186418 (Version 1)
Quarter: 2016Q1

REPORT INFORMATION
  Report Type: Spontaneous
  Country: US (occurrence: US)
  Receive Date: 20160317
  Receipt Date: 20160317
  Transmission Date: 20160526
  Serious: Yes (Other)
  Sender: FDA-Public Use
  Company Number: US-ABBVIE-16K-163-1578503-00

PATIENT

DRUGS (1)
  1. HUMIRA [Suspect]
     Active Substance: ADALIMUMAB
     Indication: GUTTATE PSORIASIS
     Route: 058

REACTIONS (11)
  - Meniscus injury [Unknown]
  - Intervertebral disc protrusion [Unknown]
  - Arthropathy [Unknown]
  - Synovial cyst [Unknown]
  - Complex regional pain syndrome [Unknown]
  - Psoriatic arthropathy [Unknown]
  - Pelvic deformity [Unknown]
  - Tendon discomfort [Unknown]
  - Tendonitis [Unknown]
  - Guttate psoriasis [Unknown]
  - Spinal osteoarthritis [Unknown]
